FAERS Safety Report 5113563-8 (Version None)
Quarter: 2006Q3

REPORT INFORMATION
  Report Type: 
  Country: None (occurrence: None)
  Receive Date: 20060920
  Receipt Date: 20060908
  Transmission Date: 20061208
  Serious: Yes (Other)
  Sender: FDA-Public Use
  Company Number: 2006110696

PATIENT
  Age: 30 Year
  Sex: Male

DRUGS (4)
  1. HALCION [Suspect]
     Indication: DRUG USE FOR UNKNOWN INDICATION
     Dosage: 0.5 MG, ORAL
     Route: 048
  2. TOLEDOMIN                   (MILNACIPRAN HYDROCHLORIDE) [Suspect]
     Indication: DRUG USE FOR UNKNOWN INDICATION
     Dosage: ORAL
     Route: 048
     Dates: end: 20060101
  3. PAXIL [Concomitant]
  4. LEXOTAN                 (BROMAZEPAM) [Suspect]
     Indication: DRUG USE FOR UNKNOWN INDICATION
     Dosage: ORAL
     Route: 048
     Dates: end: 20060101

REACTIONS (1)
  - LOSS OF CONSCIOUSNESS [None]
